FAERS Safety Report 8903768 (Version 1)
Quarter: 2012Q4

REPORT INFORMATION
  Report Type: 
  Country: US (occurrence: US)
  Receive Date: 20121113
  Receipt Date: 20121113
  Transmission Date: 20130627
  Serious: No
  Sender: FDA-Public Use
  Company Number: US-ASTRAZENECA-2012SE84178

PATIENT
  Age: 53 Year
  Sex: Female

DRUGS (1)
  1. NEXIUM [Suspect]
     Route: 048

REACTIONS (7)
  - Drug effect increased [Unknown]
  - Abdominal distension [Unknown]
  - Gastric disorder [Unknown]
  - Abdominal pain [Unknown]
  - Flatulence [Unknown]
  - Headache [Unknown]
  - Malaise [Unknown]
